FAERS Safety Report 12010600 (Version 2)
Quarter: 2017Q3

REPORT INFORMATION
  Report Type: Spontaneous
  Country: US (occurrence: US)
  Receive Date: 20160205
  Receipt Date: 20170830
  Transmission Date: 20171127
  Serious: Yes (Hospitalization, Other)
  Sender: FDA-Public Use
  Company Number: US-SUN PHARMACEUTICAL INDUSTRIES LTD-2016US-111041

PATIENT
  Age: 84 Year
  Sex: Male

DRUGS (1)
  1. IBUPROFEN. [Suspect]
     Active Substance: IBUPROFEN
     Indication: PRODUCT USED FOR UNKNOWN INDICATION
     Dosage: UNK
     Route: 065

REACTIONS (7)
  - Sepsis [Unknown]
  - Haematemesis [Recovering/Resolving]
  - Hypotension [Unknown]
  - Gastrointestinal necrosis [Unknown]
  - Anaemia [Unknown]
  - Haematochezia [Recovering/Resolving]
  - Duodenal ulcer [Recovering/Resolving]
